FAERS Safety Report 8390557-0 (Version None)
Quarter: 2012Q2

REPORT INFORMATION
  Report Type: 
  Country: None (occurrence: None)
  Receive Date: 20120529
  Receipt Date: 20120517
  Transmission Date: 20120825
  Serious: Yes (Other)
  Sender: FDA-Public Use
  Company Number: US-JNJFOC-20120514492

PATIENT
  Sex: Male

DRUGS (4)
  1. REMICADE [Suspect]
     Indication: PRODUCT USED FOR UNKNOWN INDICATION
     Route: 042
  2. REMICADE [Suspect]
     Route: 042
     Dates: start: 20031001
  3. PLAVIX [Concomitant]
  4. LOVASTATIN [Concomitant]

REACTIONS (2)
  - THERAPEUTIC PROCEDURE [None]
  - ANGINA UNSTABLE [None]
